FAERS Safety Report 9711301 (Version 1)
Quarter: 2013Q4

REPORT INFORMATION
  Report Type: Spontaneous
  Country: US (occurrence: US)
  Receive Date: 20131126
  Receipt Date: 20131126
  Transmission Date: 20140711
  Serious: No
  Sender: FDA-Public Use
  Company Number: US-BRISTOL-MYERS SQUIBB COMPANY-19060789

PATIENT
  Age: 54 Year
  Sex: Male
  Weight: 113.38 kg

DRUGS (3)
  1. BYDUREON [Suspect]
     Indication: TYPE 2 DIABETES MELLITUS
     Dosage: PRESCRIPTION #:  6797640
  2. HUMALOG [Concomitant]
     Dosage: HUMALOG 75/25
  3. METFORMIN [Concomitant]

REACTIONS (1)
  - Drug ineffective [Unknown]
